FAERS Safety Report 15478670 (Version 1)
Quarter: 2018Q4

REPORT INFORMATION
  Report Type: Spontaneous
  Country: GB (occurrence: GB)
  Receive Date: 20181009
  Receipt Date: 20181009
  Transmission Date: 20190205
  Serious: Yes (Other)
  Sender: FDA-Public Use
  Company Number: GB-PFIZER INC-2018401155

PATIENT
  Age: 85 Year
  Sex: Female
  Weight: 81 kg

DRUGS (9)
  1. ADCAL D [Concomitant]
     Dosage: 2 DF, 1X/DAY
     Dates: start: 20171005
  2. CANDESARTAN. [Concomitant]
     Active Substance: CANDESARTAN
     Dosage: 2 DF, 1X/DAY
     Dates: start: 20160203
  3. PARACETAMOL [Concomitant]
     Active Substance: ACETAMINOPHEN
     Dosage: UNK UNK, AS NEEDED
     Dates: start: 20080626
  4. TEMAZEPAM. [Concomitant]
     Active Substance: TEMAZEPAM
     Dosage: UNK UNK, MAXIMUM 1 AT NIGHT AS NEEDED
     Dates: start: 20160727
  5. DICLOFENAC DIETHYLAMINE [Concomitant]
     Active Substance: DICLOFENAC DIETHYLAMINE
     Dosage: 3 DOSE FORMS ONCE DAILY
     Dates: start: 20160203
  6. TRAMADOL. [Concomitant]
     Active Substance: TRAMADOL
     Dosage: 4 DF, 1X/DAY
     Dates: start: 20180221
  7. SODIUM CROMOGLICATE [Concomitant]
     Active Substance: CROMOLYN SODIUM
     Dosage: AS DIRECTED.
     Dates: start: 20150814
  8. PREGABALIN. [Suspect]
     Active Substance: PREGABALIN
     Dosage: 150 MG, 1X/DAY
     Route: 048
     Dates: start: 20180319, end: 20180802
  9. ALENDRONIC ACID [Concomitant]
     Active Substance: ALENDRONIC ACID
     Dosage: 1 DF, WEEKLY
     Dates: start: 20131230, end: 20180802

REACTIONS (3)
  - Skin weeping [Unknown]
  - Blister [Unknown]
  - Oedema peripheral [Recovering/Resolving]

NARRATIVE: CASE EVENT DATE: 20180601
